FAERS Safety Report 9668867 (Version 1)
Quarter: 2013Q4

REPORT INFORMATION
  Report Type: Spontaneous
  Country: US (occurrence: None)
  Receive Date: 20131104
  Receipt Date: 20131104
  Transmission Date: 20140711
  Serious: No
  Sender: FDA-Public Use
  Company Number: None

PATIENT
  Age: 51 Year
  Sex: Female
  Weight: 65.77 kg

DRUGS (1)
  1. MIRVASO 0.33% GALDERMA [Suspect]
     Indication: ROSACEA
     Dosage: ONCE DAILY APPLIED TO A SURFACE, USUALLY THE SKIN
     Dates: start: 20131011, end: 20131019

REACTIONS (2)
  - Flushing [None]
  - Erythema [None]
